FAERS Safety Report 24731016 (Version 1)
Quarter: 2024Q4

REPORT INFORMATION
  Report Type: Spontaneous
  Country: US (occurrence: None)
  Receive Date: 20241213
  Receipt Date: 20241213
  Transmission Date: 20250115
  Serious: Yes (Death, Hospitalization)
  Sender: Public
  Company Number: None

PATIENT
  Sex: Male
  Weight: 87.5 kg

DRUGS (1)
  1. MEMANTINE HYDROCHLORIDE [Suspect]
     Active Substance: MEMANTINE HYDROCHLORIDE

REACTIONS (13)
  - Neuroendocrine tumour of the lung metastatic [None]
  - Metastases to bone [None]
  - Metastases to thorax [None]
  - Pleural effusion [None]
  - Atelectasis [None]
  - Lung consolidation [None]
  - Tachypnoea [None]
  - Atrial flutter [None]
  - Fatigue [None]
  - Hyponatraemia [None]
  - Blood lactic acid increased [None]
  - Encephalopathy [None]
  - Respiratory failure [None]

NARRATIVE: CASE EVENT DATE: 20240810
